FAERS Safety Report 19267187 (Version 3)
Quarter: 2021Q2

REPORT INFORMATION
  Report Type: Report from Study
  Country: IT (occurrence: IT)
  Receive Date: 20210518
  Receipt Date: 20210610
  Transmission Date: 20210717
  Serious: Yes (Other)
  Sender: FDA-Public Use
  Company Number: IT-AUROBINDO-AUR-APL-2021-019957

PATIENT
  Age: 27 Year
  Sex: Male

DRUGS (6)
  1. EPIRUBICIN [Suspect]
     Active Substance: EPIRUBICIN
     Indication: SARCOMA
     Dosage: AS A PART OF CEVAIE REGIMEN
     Route: 065
  2. VINCRISTINE [Suspect]
     Active Substance: VINCRISTINE
     Indication: SARCOMA
     Dosage: AS A PART OF CEVAIE REGIMEN
     Route: 065
  3. IFOSFAMIDE. [Suspect]
     Active Substance: IFOSFAMIDE
     Indication: SARCOMA
     Dosage: AS A PART OF CEVAIE REGIMEN
     Route: 065
  4. ETOPOSIDE. [Suspect]
     Active Substance: ETOPOSIDE
     Indication: SARCOMA
     Dosage: AS A PART OF CEVAIE REGIMEN
     Route: 065
  5. CARBOPLATIN. [Suspect]
     Active Substance: CARBOPLATIN
     Indication: SARCOMA
     Dosage: AS A PART OF CEVAIE REGIMEN
     Route: 065
  6. ACTINOMYCIN D [Suspect]
     Active Substance: DACTINOMYCIN
     Indication: SARCOMA
     Dosage: AS A PART OF CEVAIE REGIMEN
     Route: 065

REACTIONS (3)
  - Salivary gland cancer [Recovered/Resolved]
  - Second primary malignancy [Recovered/Resolved]
  - Mucoepidermoid carcinoma [Recovered/Resolved]

NARRATIVE: CASE EVENT DATE: 2015
